FAERS Safety Report 18279914 (Version 3)
Quarter: 2020Q4

REPORT INFORMATION
  Report Type: Spontaneous
  Country: US (occurrence: US)
  Receive Date: 20200917
  Receipt Date: 20201223
  Transmission Date: 20210113
  Serious: No
  Sender: FDA-Public Use
  Company Number: NVSC2020US254419

PATIENT
  Sex: Female

DRUGS (1)
  1. COSENTYX [Suspect]
     Active Substance: SECUKINUMAB
     Indication: PRODUCT USED FOR UNKNOWN INDICATION
     Dosage: 150 MG, QMO (150MG X2)
     Route: 065
     Dates: start: 20200115

REACTIONS (3)
  - Product dose omission issue [Unknown]
  - Device issue [Unknown]
  - Wrong technique in product usage process [Unknown]
